FAERS Safety Report 5614494-7 (Version None)
Quarter: 2008Q1

REPORT INFORMATION
  Report Type: 
  Country: None (occurrence: None)
  Receive Date: 20080205
  Receipt Date: 20080129
  Transmission Date: 20080703
  Serious: Yes (Life-Threatening, Hospitalization, Other)
  Sender: FDA-Public Use
  Company Number: US-MERCK-0801USA05804

PATIENT
  Age: 72 Year
  Sex: Female
  Weight: 68 kg

DRUGS (17)
  1. JANUVIA [Suspect]
     Indication: TYPE 2 DIABETES MELLITUS
     Route: 048
     Dates: start: 20071218, end: 20071201
  2. FLOVENT [Concomitant]
     Route: 065
  3. COMBIVENT [Concomitant]
     Route: 065
  4. SENNA-S [Concomitant]
     Route: 065
  5. METHOTREXATE [Concomitant]
     Route: 065
  6. FOLIC ACID [Concomitant]
     Route: 065
  7. ZETIA [Concomitant]
     Route: 048
  8. LIPITOR [Concomitant]
     Route: 065
  9. ALTACE [Concomitant]
     Route: 065
  10. THEOPHYLLINE [Concomitant]
     Route: 065
  11. TOPROL-XL [Concomitant]
     Route: 065
  12. ASPIRIN [Concomitant]
     Route: 065
  13. IPRATROPIUM BROMIDE [Concomitant]
     Route: 065
  14. LASIX [Concomitant]
     Route: 065
  15. GLYBURIDE [Concomitant]
     Route: 065
  16. GLYBURIDE [Concomitant]
     Route: 065
  17. REMICADE [Concomitant]
     Route: 065

REACTIONS (1)
  - SMALL INTESTINAL OBSTRUCTION [None]
